FAERS Safety Report 8390256-5 (Version None)
Quarter: 2012Q2

REPORT INFORMATION
  Report Type: 
  Country: None (occurrence: None)
  Receive Date: 20120529
  Receipt Date: 20120523
  Transmission Date: 20120825
  Serious: Yes (Hospitalization, Other)
  Sender: FDA-Public Use
  Company Number: US-PFIZER INC-2012082835

PATIENT
  Sex: Female

DRUGS (4)
  1. CHANTIX [Suspect]
     Indication: SMOKING CESSATION THERAPY
     Dosage: UNK
     Route: 048
     Dates: start: 20070801, end: 20070901
  2. CITALOPRAM [Concomitant]
     Indication: DEPRESSION
     Dosage: UNK
     Dates: start: 20061201, end: 20080901
  3. HYDROCODONE [Concomitant]
     Indication: ANALGESIC THERAPY
     Dosage: UNK
     Dates: start: 20061001
  4. METHOTREXATE [Concomitant]
     Indication: RHEUMATOID ARTHRITIS
     Dosage: UNK
     Dates: start: 20060901, end: 20090201

REACTIONS (8)
  - ANXIETY [None]
  - BIPOLAR DISORDER [None]
  - SUICIDE ATTEMPT [None]
  - AGGRESSION [None]
  - INTENTIONAL OVERDOSE [None]
  - HALLUCINATION [None]
  - DEPRESSION [None]
  - ABNORMAL DREAMS [None]
